FAERS Safety Report 4795045-6 (Version None)
Quarter: 2005Q4

REPORT INFORMATION
  Report Type: 
  Country: None (occurrence: None)
  Receive Date: 20051006
  Receipt Date: 20050929
  Transmission Date: 20060501
  Serious: Yes (Other)
  Sender: FDA-Public Use
  Company Number: AZADE200500209

PATIENT
  Age: 57 Year
  Sex: Female
  Weight: 60 kg

DRUGS (11)
  1. AZACITIDINE (AZACITIDINE) (INJECTION) [Suspect]
     Indication: MYELODYSPLASTIC SYNDROME
     Dosage: 75 MG/M2 (125 MG, DAILY X 7 DAYS), SUBCUTANEOUS; SEE IMAGE
     Route: 058
     Dates: start: 20050426, end: 20050502
  2. AZACITIDINE (AZACITIDINE) (INJECTION) [Suspect]
     Indication: MYELODYSPLASTIC SYNDROME
     Dosage: 75 MG/M2 (125 MG, DAILY X 7 DAYS), SUBCUTANEOUS; SEE IMAGE
     Route: 058
     Dates: start: 20050607, end: 20050613
  3. OMEPRAZOLE [Concomitant]
  4. KATADOLON (FLUPIRTINE MALEATE) [Concomitant]
  5. ASCOTOP (ZOLMITRIPTAN) [Concomitant]
  6. NEDOLON P (PANADEINE CO) [Concomitant]
  7. STILNOX (ZOLPIDEM) [Concomitant]
  8. KERLONE MITE (BETAXOLOL) [Concomitant]
  9. THYRONAJOD (JODTHYROX) [Concomitant]
  10. COLDASTOP (ROVIGON) [Concomitant]
  11. ACETAMINOPHEN [Concomitant]

REACTIONS (3)
  - DISEASE PROGRESSION [None]
  - MYELOFIBROSIS [None]
  - STEM CELL TRANSPLANT [None]
